FAERS Safety Report 26133563 (Version 1)
Quarter: 2025Q4

REPORT INFORMATION
  Report Type: Spontaneous
  Country: AU (occurrence: AU)
  Receive Date: 20251209
  Receipt Date: 20251209
  Transmission Date: 20260118
  Serious: Yes (Other)
  Sender: ALKEM
  Company Number: None

PATIENT
  Age: 76 Year
  Sex: Male
  Weight: 80.1 kg

DRUGS (12)
  1. LINEZOLID [Suspect]
     Active Substance: LINEZOLID
     Indication: Staphylococcal infection
     Dosage: 600 MILLIGRAM, BID (TABLET)
     Route: 048
  2. VANCOMYCIN [Interacting]
     Active Substance: VANCOMYCIN
     Indication: Staphylococcal infection
     Dosage: 25 MILLIGRAM/KILOGRAM (INITIAL LOADING DOSE)
     Route: 042
  3. VANCOMYCIN [Interacting]
     Active Substance: VANCOMYCIN
     Dosage: 2.1 GRAM, BID (DAY 1)
     Route: 042
  4. VANCOMYCIN [Interacting]
     Active Substance: VANCOMYCIN
     Dosage: 2 GRAM, BID (DAY 2, DAY 3)
     Route: 042
  5. VANCOMYCIN [Interacting]
     Active Substance: VANCOMYCIN
     Dosage: 2.2 GRAM, BID (DAY 4, 5, 6)
     Route: 042
  6. METHOTREXATE [Interacting]
     Active Substance: METHOTREXATE
     Indication: Central nervous system lymphoma
     Dosage: 3500 MILLIGRAM/SQ. METER, ONCE IN 2 WEEKS
     Route: 065
  7. PROCARBAZINE [Suspect]
     Active Substance: PROCARBAZINE
     Indication: Central nervous system lymphoma
     Dosage: 100 MILLIGRAM/SQ. METER, (200 MG) FOR 7 DAYS
     Route: 048
  8. PROCARBAZINE [Suspect]
     Active Substance: PROCARBAZINE
     Dosage: UNK (RECHALLENGE DOSE)
     Route: 065
  9. RITUXIMAB [Concomitant]
     Active Substance: RITUXIMAB
     Indication: Central nervous system lymphoma
     Dosage: UNK
     Route: 065
  10. SODIUM BICARBONATE [Concomitant]
     Active Substance: SODIUM BICARBONATE
     Indication: Urine alkalinisation therapy
     Dosage: UNK
     Route: 065
  11. VINCRISTINE [Concomitant]
     Active Substance: VINCRISTINE
     Indication: Central nervous system lymphoma
     Dosage: UNK
     Route: 065
  12. MOXIFLOXACIN [Concomitant]
     Active Substance: MOXIFLOXACIN
     Indication: Staphylococcal infection
     Dosage: 400 MILLIGRAM, QD
     Route: 048

REACTIONS (4)
  - Neutropenia [Recovered/Resolved]
  - Acute kidney injury [Recovered/Resolved]
  - Antibiotic level above therapeutic [Unknown]
  - Drug interaction [Unknown]
